FAERS Safety Report 12673406 (Version 2)
Quarter: 2016Q3

REPORT INFORMATION
  Report Type: Spontaneous
  Country: US (occurrence: US)
  Receive Date: 20160822
  Receipt Date: 20160913
  Transmission Date: 20161109
  Serious: Yes (Hospitalization)
  Sender: FDA-Public Use
  Company Number: US-CELGENEUS-USA-2016083941

PATIENT
  Age: 60 Year
  Sex: Male

DRUGS (2)
  1. POMALYST [Suspect]
     Active Substance: POMALIDOMIDE
     Indication: PLASMA CELL MYELOMA RECURRENT
     Route: 048
     Dates: start: 201601, end: 20160805
  2. POMALYST [Suspect]
     Active Substance: POMALIDOMIDE
     Route: 048
     Dates: start: 20160822, end: 20160824

REACTIONS (5)
  - Anaemia [Unknown]
  - Pyrexia [Unknown]
  - Urinary retention [Unknown]
  - Constipation [Unknown]
  - Neutropenia [Unknown]

NARRATIVE: CASE EVENT DATE: 20160806
